FAERS Safety Report 12508936 (Version 1)
Quarter: 2016Q2

REPORT INFORMATION
  Report Type: Spontaneous
  Country: US (occurrence: US)
  Receive Date: 20160629
  Receipt Date: 20160629
  Transmission Date: 20160815
  Serious: Yes (Other)
  Sender: FDA-Public Use
  Company Number: US-B.I. PHARMACEUTICALS,INC./RIDGEFIELD-2016-BI-40628BP

PATIENT
  Age: 52 Year
  Sex: Female
  Weight: 74.1 kg

DRUGS (65)
  1. LAMICTAL [Suspect]
     Active Substance: LAMOTRIGINE
     Indication: SIMPLE PARTIAL SEIZURES
     Dosage: 200 MG
     Route: 065
  2. LAMICTAL [Suspect]
     Active Substance: LAMOTRIGINE
     Dosage: 300 MG
     Route: 065
     Dates: start: 20120312
  3. TOPIRAMATE. [Suspect]
     Active Substance: TOPIRAMATE
     Dosage: 300 MG
     Route: 048
     Dates: start: 20141201, end: 20150209
  4. TOPIRAMATE. [Suspect]
     Active Substance: TOPIRAMATE
     Dosage: 350 MG
     Route: 048
     Dates: start: 20150210
  5. BUTORPHANOL TARTRATE. [Concomitant]
     Active Substance: BUTORPHANOL TARTRATE
     Indication: PRODUCT USED FOR UNKNOWN INDICATION
     Route: 065
  6. TALWIN [Concomitant]
     Active Substance: PENTAZOCINE LACTATE
     Indication: PRODUCT USED FOR UNKNOWN INDICATION
     Route: 065
  7. LIDOCAINE. [Concomitant]
     Active Substance: LIDOCAINE
     Indication: PRODUCT USED FOR UNKNOWN INDICATION
     Route: 065
  8. MELOXICAM. [Concomitant]
     Active Substance: MELOXICAM
     Indication: PRODUCT USED FOR UNKNOWN INDICATION
     Route: 065
  9. DULCOLAX NOS [Suspect]
     Active Substance: BISACODYL OR DOCUSATE SODIUM
     Indication: FAECES HARD
     Route: 065
     Dates: start: 201507
  10. POTIGA [Suspect]
     Active Substance: EZOGABINE
     Indication: COMPLEX PARTIAL SEIZURES
     Dosage: 600 MG
     Route: 048
     Dates: end: 201411
  11. POTIGA [Suspect]
     Active Substance: EZOGABINE
     Dosage: 750 MG
     Route: 048
     Dates: end: 20140421
  12. LEVETIRACETAM. [Suspect]
     Active Substance: LEVETIRACETAM
     Dosage: 5000 MG
     Route: 048
     Dates: start: 20141201, end: 20150827
  13. HYDROMORPHONE [Suspect]
     Active Substance: HYDROMORPHONE
     Indication: PAIN
     Route: 065
  14. LOVENOX [Concomitant]
     Active Substance: ENOXAPARIN SODIUM
     Indication: PRODUCT USED FOR UNKNOWN INDICATION
     Route: 065
  15. MUPIROCIN. [Concomitant]
     Active Substance: MUPIROCIN
     Indication: PRODUCT USED FOR UNKNOWN INDICATION
     Route: 065
  16. CLINDAMYCIN [Concomitant]
     Active Substance: CLINDAMYCIN\CLINDAMYCIN PHOSPHATE
     Indication: PRODUCT USED FOR UNKNOWN INDICATION
     Route: 065
  17. PREMARIN [Concomitant]
     Active Substance: ESTROGENS, CONJUGATED
     Indication: PRODUCT USED FOR UNKNOWN INDICATION
     Route: 065
  18. POTIGA [Suspect]
     Active Substance: EZOGABINE
     Dosage: 600 MG
     Route: 048
  19. KEPPRA [Suspect]
     Active Substance: LEVETIRACETAM
     Indication: SEIZURE
     Dosage: 1500 MG
     Route: 048
     Dates: start: 201112
  20. DIAZEPAM. [Suspect]
     Active Substance: DIAZEPAM
     Indication: PRODUCT USED FOR UNKNOWN INDICATION
     Dosage: 40 MG
     Route: 065
  21. ATENOLOL. [Suspect]
     Active Substance: ATENOLOL
     Indication: PRODUCT USED FOR UNKNOWN INDICATION
     Dosage: 25 MG
     Route: 048
     Dates: end: 20140904
  22. XENICAL [Concomitant]
     Active Substance: ORLISTAT
     Indication: PRODUCT USED FOR UNKNOWN INDICATION
     Route: 065
  23. DILANTIN [Concomitant]
     Active Substance: PHENYTOIN
     Indication: PRODUCT USED FOR UNKNOWN INDICATION
     Route: 065
  24. PROMETHAZINE [Concomitant]
     Active Substance: PROMETHAZINE\PROMETHAZINE HYDROCHLORIDE
     Indication: PRODUCT USED FOR UNKNOWN INDICATION
     Route: 065
  25. SULFAMETHOXAZOLE AND TRIMETHOPRIM [Concomitant]
     Active Substance: SULFAMETHOXAZOLE\TRIMETHOPRIM
     Indication: PRODUCT USED FOR UNKNOWN INDICATION
     Route: 065
  26. LASIX [Concomitant]
     Active Substance: FUROSEMIDE
     Indication: PRODUCT USED FOR UNKNOWN INDICATION
     Route: 065
  27. ZOLPIDEM [Concomitant]
     Active Substance: ZOLPIDEM\ZOLPIDEM TARTRATE
     Indication: PRODUCT USED FOR UNKNOWN INDICATION
     Route: 065
  28. HYDROXYZ PAM [Concomitant]
     Active Substance: HYDROXYZINE PAMOATE
     Indication: PRODUCT USED FOR UNKNOWN INDICATION
     Route: 065
  29. IPRATROPIUM BROMIDE AND ALBUTEROL SULFATE [Concomitant]
     Active Substance: ALBUTEROL SULFATE\IPRATROPIUM BROMIDE
     Indication: PRODUCT USED FOR UNKNOWN INDICATION
     Route: 065
  30. POTIGA [Suspect]
     Active Substance: EZOGABINE
     Dosage: 1800 MG
     Route: 048
     Dates: start: 20140421
  31. AMITRIPTYLINE [Suspect]
     Active Substance: AMITRIPTYLINE
     Dosage: 75 MG
     Route: 048
  32. KEPPRA [Suspect]
     Active Substance: LEVETIRACETAM
     Dosage: 4000 MG
     Route: 048
     Dates: start: 201112
  33. TOPIRAMATE. [Suspect]
     Active Substance: TOPIRAMATE
     Dosage: 400 MG
     Route: 048
     Dates: start: 201502
  34. NALOXONE+PENTAZOCINE [Concomitant]
     Indication: PRODUCT USED FOR UNKNOWN INDICATION
     Route: 065
  35. POTIGA [Suspect]
     Active Substance: EZOGABINE
     Dosage: 825 MG
     Route: 048
  36. LAMICTAL [Suspect]
     Active Substance: LAMOTRIGINE
     Indication: COMPLEX PARTIAL SEIZURES
     Dosage: 275 MG
     Route: 065
  37. LEVETIRACETAM. [Suspect]
     Active Substance: LEVETIRACETAM
     Indication: SEIZURE
     Dosage: 2000 MG
     Route: 048
     Dates: start: 20141016, end: 20141114
  38. LEVETIRACETAM. [Suspect]
     Active Substance: LEVETIRACETAM
     Dosage: 2500 MG
     Route: 048
     Dates: start: 20141115, end: 20141201
  39. TOPIRAMATE. [Suspect]
     Active Substance: TOPIRAMATE
     Indication: SEIZURE
     Dosage: 100 MG
     Route: 048
     Dates: start: 201409
  40. TOPIRAMATE. [Suspect]
     Active Substance: TOPIRAMATE
     Dosage: 150 MG
     Route: 048
     Dates: start: 201409, end: 20141201
  41. METHADONE [Suspect]
     Active Substance: METHADONE HYDROCHLORIDE
     Indication: PAIN
     Dosage: 30 MG
     Route: 048
     Dates: start: 201507
  42. AMITRIPTYLINE [Suspect]
     Active Substance: AMITRIPTYLINE
     Dosage: 100 MG
     Route: 048
     Dates: start: 201409
  43. CALCIUM [Concomitant]
     Active Substance: CALCIUM
     Indication: PRODUCT USED FOR UNKNOWN INDICATION
     Route: 065
  44. AMOXICILLIN. [Concomitant]
     Active Substance: AMOXICILLIN
     Indication: PRODUCT USED FOR UNKNOWN INDICATION
     Route: 065
  45. METHYLPRED [Concomitant]
     Active Substance: METHYLPREDNISOLONE
     Indication: PRODUCT USED FOR UNKNOWN INDICATION
     Route: 065
  46. VENFLAXINE-HCL [Concomitant]
     Indication: PRODUCT USED FOR UNKNOWN INDICATION
     Dosage: ER
     Route: 065
  47. NORCO [Concomitant]
     Active Substance: ACETAMINOPHEN\HYDROCODONE BITARTRATE
     Indication: PRODUCT USED FOR UNKNOWN INDICATION
     Route: 065
  48. LORCET [Suspect]
     Active Substance: ACETAMINOPHEN\HYDROCODONE BITARTRATE
     Indication: PRODUCT USED FOR UNKNOWN INDICATION
     Dosage: 4 ANZ
     Route: 048
     Dates: end: 20120713
  49. SYNTHROID [Concomitant]
     Active Substance: LEVOTHYROXINE SODIUM
     Indication: PRODUCT USED FOR UNKNOWN INDICATION
     Route: 065
  50. TIZADINE [Concomitant]
     Active Substance: TIZANIDINE HYDROCHLORIDE
     Indication: PRODUCT USED FOR UNKNOWN INDICATION
     Route: 065
  51. ALENDRONATE [Concomitant]
     Active Substance: ALENDRONATE SODIUM
     Indication: PRODUCT USED FOR UNKNOWN INDICATION
     Route: 065
  52. LEXAPRO [Concomitant]
     Active Substance: ESCITALOPRAM OXALATE
     Indication: PRODUCT USED FOR UNKNOWN INDICATION
     Route: 065
  53. ROBAXIN [Concomitant]
     Active Substance: METHOCARBAMOL
     Indication: PRODUCT USED FOR UNKNOWN INDICATION
     Route: 065
  54. MICRO-K [Concomitant]
     Active Substance: POTASSIUM CHLORIDE
     Indication: PRODUCT USED FOR UNKNOWN INDICATION
     Route: 065
  55. DULCOLAX NOS [Suspect]
     Active Substance: BISACODYL OR DOCUSATE SODIUM
     Indication: PROPHYLAXIS
  56. POTIGA [Suspect]
     Active Substance: EZOGABINE
     Indication: SIMPLE PARTIAL SEIZURES
     Dosage: 150 MG
     Route: 048
     Dates: start: 20120801
  57. POTIGA [Suspect]
     Active Substance: EZOGABINE
     Indication: GENERALISED TONIC-CLONIC SEIZURE
     Dosage: 900 MG
     Route: 048
  58. ACETAMINOPHEN\HYDROCODONE BITARTRATE [Suspect]
     Active Substance: ACETAMINOPHEN\HYDROCODONE BITARTRATE
     Indication: PAIN
     Dosage: 4 ANZ
     Route: 048
  59. METHADONE [Suspect]
     Active Substance: METHADONE HYDROCHLORIDE
     Dosage: 15 MG
     Route: 048
  60. LEVETIRACETAM. [Suspect]
     Active Substance: LEVETIRACETAM
     Indication: SEIZURE
     Route: 048
     Dates: start: 20150827
  61. AMITRIPTYLINE [Suspect]
     Active Substance: AMITRIPTYLINE
     Indication: MIGRAINE
     Dosage: 150 MG
     Route: 048
  62. PLAVIX [Concomitant]
     Active Substance: CLOPIDOGREL BISULFATE
     Indication: PRODUCT USED FOR UNKNOWN INDICATION
     Route: 065
  63. FOLIC ACID. [Concomitant]
     Active Substance: FOLIC ACID
     Indication: PRODUCT USED FOR UNKNOWN INDICATION
     Route: 065
  64. LORAZEPAM. [Concomitant]
     Active Substance: LORAZEPAM
     Indication: PRODUCT USED FOR UNKNOWN INDICATION
     Route: 065
  65. VITAMIN D3 [Concomitant]
     Active Substance: CHOLECALCIFEROL
     Indication: PRODUCT USED FOR UNKNOWN INDICATION
     Route: 065

REACTIONS (5)
  - Drug interaction [Unknown]
  - Medication residue present [Unknown]
  - Preictal state [Unknown]
  - Diarrhoea [Unknown]
  - Convulsive threshold lowered [Unknown]

NARRATIVE: CASE EVENT DATE: 20141003
